FAERS Safety Report 4635134-X (Version None)
Quarter: 2005Q2

REPORT INFORMATION
  Report Type: 
  Country: None (occurrence: None)
  Receive Date: 20050414
  Receipt Date: 20050330
  Transmission Date: 20051028
  Serious: Yes (Other)
  Sender: FDA-Public Use
  Company Number: PHEH2005US04182

PATIENT

DRUGS (1)
  1. FEMARA [Suspect]

REACTIONS (1)
  - MACULAR DEGENERATION [None]
